FAERS Safety Report 9029681 (Version 2)
Quarter: 2013Q1

REPORT INFORMATION
  Report Type: Spontaneous
  Country: CA (occurrence: CA)
  Receive Date: 20130124
  Receipt Date: 20130208
  Transmission Date: 20140127
  Serious: Yes (Hospitalization, Other)
  Sender: FDA-Public Use
  Company Number: CA-AMGEN-CANSP2013003869

PATIENT
  Age: 90 Year
  Sex: Female
  Weight: 70 kg

DRUGS (1)
  1. NPLATE [Suspect]
     Indication: IDIOPATHIC THROMBOCYTOPENIC PURPURA
     Dosage: 700 UNK, QWK
     Route: 058
     Dates: start: 20121018

REACTIONS (3)
  - No therapeutic response [Not Recovered/Not Resolved]
  - Gastrointestinal haemorrhage [Unknown]
  - Myelodysplastic syndrome [Unknown]
